FAERS Safety Report 7315105-5 (Version None)
Quarter: 2011Q1

REPORT INFORMATION
  Report Type: 
  Country: None (occurrence: None)
  Receive Date: 20110225
  Receipt Date: 20110214
  Transmission Date: 20110831
  Serious: Yes (Other)
  Sender: FDA-Public Use
  Company Number: PHHY2011DE11881

PATIENT
  Sex: Male

DRUGS (2)
  1. ZOMETA [Suspect]
     Indication: METASTASES TO BONE
     Dosage: 4 MG
     Route: 042
     Dates: start: 20110207
  2. ZOMETA [Suspect]
     Indication: PROSTATE CANCER

REACTIONS (4)
  - ACUTE PHASE REACTION [None]
  - BONE PAIN [None]
  - PAIN [None]
  - MYALGIA [None]
